FAERS Safety Report 16691508 (Version 2)
Quarter: 2019Q3

REPORT INFORMATION
  Report Type: Spontaneous
  Country: FR (occurrence: FR)
  Receive Date: 20190812
  Receipt Date: 20190816
  Transmission Date: 20191004
  Serious: Yes (Death)
  Sender: FDA-Public Use
  Company Number: FR-TEVA-2019-FR-1090372

PATIENT
  Age: 49 Year
  Sex: Male

DRUGS (4)
  1. ALIMEMAZINE [Suspect]
     Active Substance: TRIMEPRAZINE
     Dates: start: 2017
  2. PAROXETINE. [Suspect]
     Active Substance: PAROXETINE
     Dates: start: 2017
  3. AMITRIPTYLINE [Suspect]
     Active Substance: AMITRIPTYLINE
     Dates: start: 2017
  4. COCAINE [Suspect]
     Active Substance: COCAINE
     Dates: start: 2017

REACTIONS (6)
  - Asphyxia [Fatal]
  - Drug abuse [Fatal]
  - Pulmonary congestion [Fatal]
  - Death [Fatal]
  - Pulmonary oedema [Fatal]
  - Poisoning [Fatal]

NARRATIVE: CASE EVENT DATE: 2017
